FAERS Safety Report 18232195 (Version 1)
Quarter: 2020Q3

REPORT INFORMATION
  Report Type: Spontaneous
  Country: US (occurrence: US)
  Receive Date: 20200904
  Receipt Date: 20200904
  Transmission Date: 20201103
  Serious: Yes (Life-Threatening, Hospitalization)
  Sender: FDA-Public Use
  Company Number: US-MYLANLABS-2020M1076047

PATIENT
  Age: 56 Year
  Sex: Male

DRUGS (10)
  1. CALCIUM GLUCONATE. [Suspect]
     Active Substance: CALCIUM GLUCONATE
     Indication: HYPERMAGNESAEMIA
     Dosage: 2 GRAM, ADDITIONAL DOSE DUE TO NO IMPROVEMENT ON PREVIOUS DOSE
     Route: 042
  2. PIPERACILLIN/TAZOBACTAM [Concomitant]
     Active Substance: PIPERACILLIN SODIUM\TAZOBACTAM SODIUM
     Indication: EVIDENCE BASED TREATMENT
     Route: 065
  3. FUROSEMIDE. [Suspect]
     Active Substance: FUROSEMIDE
     Indication: TOXICITY TO VARIOUS AGENTS
     Dosage: 40 MILLIGRAM
     Route: 042
  4. LACTATED RINGERS SOLUTION [Suspect]
     Active Substance: CALCIUM CHLORIDE\POTASSIUM CHLORIDE\SODIUM CHLORIDE\SODIUM LACTATE
     Indication: HYPERMAGNESAEMIA
     Dosage: 125 MILLILITER, QH
     Route: 065
  5. CALCIUM GLUCONATE. [Suspect]
     Active Substance: CALCIUM GLUCONATE
     Dosage: 4 GRAM, ADDITIONAL DOSE DUE TO NO IMPROVEMENT ON PREVIOUS DOSES
     Route: 042
  6. VANCOMYCIN [Concomitant]
     Active Substance: VANCOMYCIN
     Indication: EVIDENCE BASED TREATMENT
     Dosage: UNK
     Route: 065
  7. FUROSEMIDE. [Suspect]
     Active Substance: FUROSEMIDE
     Indication: HYPERMAGNESAEMIA
  8. LACTATED RINGERS SOLUTION [Suspect]
     Active Substance: CALCIUM CHLORIDE\POTASSIUM CHLORIDE\SODIUM CHLORIDE\SODIUM LACTATE
     Indication: TOXICITY TO VARIOUS AGENTS
     Dosage: 2 LITER
     Route: 065
  9. MAGNESIUM SULFATE. [Suspect]
     Active Substance: MAGNESIUM SULFATE
     Indication: CONSTIPATION
     Dosage: CONSUMED 4 TABLESPOONS;ACCIDENTALLY CONFUSED WITH THE RECOMMENDED DOSE OF 2?4 TEASPOONS...
     Route: 048
  10. CALCIUM GLUCONATE. [Suspect]
     Active Substance: CALCIUM GLUCONATE
     Indication: TOXICITY TO VARIOUS AGENTS
     Dosage: 2 GRAM
     Route: 042

REACTIONS (20)
  - Accidental overdose [Recovering/Resolving]
  - Unresponsive to stimuli [Recovered/Resolved]
  - Atrioventricular block [Recovering/Resolving]
  - Electrocardiogram QT prolonged [Recovering/Resolving]
  - Respiratory failure [Recovered/Resolved]
  - Hypothermia [Recovered/Resolved]
  - Asthenia [Recovered/Resolved]
  - Electrocardiogram QRS complex prolonged [Recovering/Resolving]
  - Incorrect dose administered [Recovering/Resolving]
  - Hypermagnesaemia [Recovered/Resolved]
  - Apnoea [Recovered/Resolved]
  - Drug ineffective [Unknown]
  - Bradycardia [Recovered/Resolved]
  - Hypotension [Recovered/Resolved]
  - Toxicity to various agents [Recovered/Resolved]
  - Malaise [Recovered/Resolved]
  - Hyporeflexia [Recovered/Resolved]
  - Mental status changes [Recovered/Resolved]
  - Somnolence [Recovered/Resolved]
  - Lethargy [Recovered/Resolved]
